FAERS Safety Report 4885460-4 (Version None)
Quarter: 2005Q4

REPORT INFORMATION
  Report Type: 
  Country: None (occurrence: None)
  Receive Date: 20051216
  Receipt Date: 20051020
  Transmission Date: 20060501
  Serious: Yes (Hospitalization, Other)
  Sender: FDA-Public Use
  Company Number: 2005105939

PATIENT
  Sex: Male

DRUGS (3)
  1. ARTHROTEC [Suspect]
     Indication: SHOULDER PAIN
     Dosage: (1 IN 1 AS NECESSARY)
     Dates: start: 19990101
  2. METFORMIN [Concomitant]
  3. ACETAMINOPHEN [Concomitant]

REACTIONS (4)
  - BURNING SENSATION [None]
  - SCROTAL PAIN [None]
  - SHOULDER PAIN [None]
  - ULCER [None]
